FAERS Safety Report 7427854-9 (Version None)
Quarter: 2011Q2

REPORT INFORMATION
  Report Type: 
  Country: None (occurrence: None)
  Receive Date: 20110421
  Receipt Date: 20110411
  Transmission Date: 20111010
  Serious: Yes (Hospitalization)
  Sender: FDA-Public Use
  Company Number: CU-RANBAXY-2011RR-43067

PATIENT
  Age: 18 Month
  Sex: Male

DRUGS (1)
  1. FLECAINIDE ACETATE [Suspect]
     Dosage: 1000 MG, UNK
     Route: 048

REACTIONS (4)
  - ACCIDENTAL OVERDOSE [None]
  - VENTRICULAR TACHYCARDIA [None]
  - GRAND MAL CONVULSION [None]
  - ELECTROCARDIOGRAM QT PROLONGED [None]
